FAERS Safety Report 15768705 (Version 1)
Quarter: 2018Q4

REPORT INFORMATION
  Report Type: Spontaneous
  Country: FR (occurrence: FR)
  Receive Date: 20181228
  Receipt Date: 20181228
  Transmission Date: 20190205
  Serious: Yes (Life-Threatening)
  Sender: FDA-Public Use
  Company Number: FR-ZYDUS-032107

PATIENT
  Age: 71 Year
  Sex: Female
  Weight: 121.5 kg

DRUGS (4)
  1. RAMIPRIL. [Suspect]
     Active Substance: RAMIPRIL
     Indication: TOXICITY TO VARIOUS AGENTS
  2. ZOPICLONE [Suspect]
     Active Substance: ZOPICLONE
     Indication: PRODUCT USED FOR UNKNOWN INDICATION
  3. AMITRIPTYLINE [Suspect]
     Active Substance: AMITRIPTYLINE
     Indication: TOXICITY TO VARIOUS AGENTS
     Dosage: ()
     Route: 048
  4. LERCANIDIPINE [Suspect]
     Active Substance: LERCANIDIPINE
     Indication: TOXICITY TO VARIOUS AGENTS

REACTIONS (6)
  - Pneumonia aspiration [Recovered/Resolved]
  - Acute respiratory distress syndrome [Recovered/Resolved]
  - Shock [Recovered/Resolved]
  - Coma [Recovered/Resolved]
  - Toxicity to various agents [Recovered/Resolved]
  - Acute kidney injury [Recovered/Resolved]

NARRATIVE: CASE EVENT DATE: 20181122
